FAERS Safety Report 4507246-2 (Version None)
Quarter: 2004Q4

REPORT INFORMATION
  Report Type: 
  Country: None (occurrence: None)
  Receive Date: 20041115
  Receipt Date: 20041027
  Transmission Date: 20050328
  Serious: Yes (Hospitalization)
  Sender: FDA-Public Use
  Company Number: THYM-10224

PATIENT
  Age: 60 Year
  Sex: Female
  Weight: 69.7 kg

DRUGS (11)
  1. THYMOGLOBULIN [Suspect]
     Indication: RENAL TRANSPLANT
     Dosage: 100 MG QD IV
     Route: 042
     Dates: start: 20030828, end: 20030829
  2. CELLCEPT [Concomitant]
  3. VALCYTE [Concomitant]
  4. METOPROLOL [Concomitant]
  5. ASPIRIN [Concomitant]
  6. PROGRAF [Concomitant]
  7. PROTONIX [Concomitant]
  8. ZOCOR [Concomitant]
  9. NYSTATIN [Concomitant]
  10. COLACE [Concomitant]
  11. PERCOCET [Concomitant]

REACTIONS (8)
  - EJECTION FRACTION DECREASED [None]
  - MYOCARDIAL INFARCTION [None]
  - MYOCARDIAL ISCHAEMIA [None]
  - POST PROCEDURAL COMPLICATION [None]
  - PULMONARY OEDEMA [None]
  - SINUS BRADYCARDIA [None]
  - VENTRICULAR DYSFUNCTION [None]
  - VENTRICULAR HYPERTROPHY [None]
